FAERS Safety Report 15241912 (Version 1)
Quarter: 2018Q3

REPORT INFORMATION
  Report Type: Spontaneous
  Country: IE (occurrence: IE)
  Receive Date: 20180806
  Receipt Date: 20180806
  Transmission Date: 20181010
  Serious: Yes (Hospitalization, Other)
  Sender: FDA-Public Use
  Company Number: IE-INGENUS PHARMACEUTICALS NJ, LLC-ING201807-000784

PATIENT
  Age: 45 Year
  Sex: Male

DRUGS (1)
  1. CARISOPRODOL, ASPIRIN AND CODEINE PHOSPHATE [Suspect]
     Active Substance: ASPIRIN\CARISOPRODOL\CODEINE PHOSPHATE

REACTIONS (9)
  - Gastrointestinal haemorrhage [Unknown]
  - Perforated ulcer [Unknown]
  - Pancreatitis [Unknown]
  - Gastric ulcer [Unknown]
  - Duodenal ulcer [Unknown]
  - Abdominal pain upper [Recovering/Resolving]
  - Addison^s disease [Unknown]
  - Intentional product misuse [Unknown]
  - Dependence [Recovering/Resolving]

NARRATIVE: CASE EVENT DATE: 2012
